FAERS Safety Report 5366912-X (Version None)
Quarter: 2007Q2

REPORT INFORMATION
  Report Type: 
  Country: None (occurrence: None)
  Receive Date: 20070622
  Receipt Date: 20070402
  Transmission Date: 20071010
  Serious: No
  Sender: FDA-Public Use
  Company Number: US-ASTRAZENECA-2007UW06547

PATIENT
  Age: 69 Year
  Sex: Female
  Weight: 56.7 kg

DRUGS (7)
  1. RHINOCORT [Suspect]
     Indication: NASAL SEPTUM DEVIATION
     Dosage: 120 METER SPRAY/UNIT
     Route: 045
     Dates: start: 20070321
  2. DAPSONE [Concomitant]
  3. FEXOFENADINE [Concomitant]
  4. LEVOTHYROXINE SODIUM [Concomitant]
  5. CELEBREX [Concomitant]
  6. FLOXIN [Concomitant]
  7. PREVACID [Concomitant]

REACTIONS (2)
  - EAR DISORDER [None]
  - HEARING IMPAIRED [None]
